FAERS Safety Report 17547521 (Version 1)
Quarter: 2020Q1

REPORT INFORMATION
  Report Type: Spontaneous
  Country: DE (occurrence: DE)
  Receive Date: 20200316
  Receipt Date: 20200316
  Transmission Date: 20200409
  Serious: Yes (Hospitalization)
  Sender: FDA-Public Use
  Company Number: DE-BAYER-2020-040673

PATIENT
  Age: 34 Year
  Sex: Female
  Weight: 81 kg

DRUGS (1)
  1. MIRENA [Suspect]
     Active Substance: LEVONORGESTREL
     Indication: INTRAUTERINE CONTRACEPTION
     Dosage: 20 ?G PER DAY CONTINUOUSLY
     Route: 015
     Dates: start: 20111101, end: 20190824

REACTIONS (7)
  - Fatigue [Recovered/Resolved with Sequelae]
  - Psychiatric symptom [Unknown]
  - Palpitations [Recovered/Resolved with Sequelae]
  - Headache [Recovered/Resolved with Sequelae]
  - Panic attack [Recovered/Resolved with Sequelae]
  - Restlessness [Recovered/Resolved with Sequelae]
  - Feeling abnormal [Recovered/Resolved with Sequelae]

NARRATIVE: CASE EVENT DATE: 20111101
